FAERS Safety Report 6216685-3 (Version None)
Quarter: 2009Q2

REPORT INFORMATION
  Report Type: 
  Country: None (occurrence: None)
  Receive Date: 20090604
  Receipt Date: 20090604
  Transmission Date: 20091009
  Serious: Yes (Life-Threatening)
  Sender: FDA-Public Use
  Company Number: None

PATIENT
  Sex: Male
  Weight: 97.0698 kg

DRUGS (1)
  1. LAMICTAL [Suspect]
     Indication: EPILEPSY
     Dosage: 300MG BID PO
     Route: 048
     Dates: start: 20040101

REACTIONS (4)
  - APNOEA [None]
  - CONVULSION [None]
  - PRODUCT SUBSTITUTION ISSUE [None]
  - TACHYCARDIA [None]
